FAERS Safety Report 7567874-7 (Version None)
Quarter: 2011Q2

REPORT INFORMATION
  Report Type: 
  Country: None (occurrence: None)
  Receive Date: 20110623
  Receipt Date: 20110608
  Transmission Date: 20111010
  Serious: Yes (Death)
  Sender: FDA-Public Use
  Company Number: IT-ASTELLAS-2011EU003863

PATIENT
  Age: 23 Year
  Sex: Female

DRUGS (2)
  1. TACROLIMUS [Suspect]
     Indication: LIVER TRANSPLANT
     Dosage: UNK
     Route: 065
  2. IMMUNOSUPPRESSIVE AGENTS [Concomitant]
     Dosage: UNK
     Route: 065

REACTIONS (1)
  - HEPATIC NEOPLASM MALIGNANT RECURRENT [None]
